FAERS Safety Report 5254259-1 (Version None)
Quarter: 2007Q1

REPORT INFORMATION
  Report Type: 
  Country: None (occurrence: None)
  Receive Date: 20070302
  Receipt Date: 20070228
  Transmission Date: 20070707
  Serious: Yes (Other)
  Sender: FDA-Public Use
  Company Number: US-GLAXOSMITHKLINE-A0641374A

PATIENT
  Age: 67 Year
  Sex: Female

DRUGS (6)
  1. COREG [Suspect]
     Indication: HYPERTENSION
     Dosage: 12.5MG PER DAY
     Route: 048
     Dates: start: 20060101
  2. COZAAR [Suspect]
     Indication: HYPERTENSION
     Dosage: 100MG PER DAY
  3. HYDROCHLOROTHIAZIDE [Suspect]
     Indication: HYPERTENSION
     Dosage: 25MG PER DAY
  4. LIPITOR [Suspect]
     Dosage: 20MG PER DAY
  5. VERAPAMIL [Suspect]
     Indication: HYPERTENSION
     Dosage: 240MG TWICE PER DAY
     Dates: start: 20060101
  6. NO CONCURRENT MEDICATION [Concomitant]

REACTIONS (1)
  - RENAL FAILURE [None]
